FAERS Safety Report 5392270-0 (Version None)
Quarter: 2007Q3

REPORT INFORMATION
  Report Type: 
  Country: None (occurrence: None)
  Receive Date: 20070720
  Receipt Date: 20070717
  Transmission Date: 20080115
  Serious: Yes (Death)
  Sender: FDA-Public Use
  Company Number: FR-BRISTOL-MYERS SQUIBB COMPANY-13850300

PATIENT
  Age: 31 Year
  Sex: Male
  Weight: 60 kg

DRUGS (3)
  1. REYATAZ [Suspect]
     Indication: HIV INFECTION
     Route: 048
     Dates: start: 20060301, end: 20060921
  2. COMBIVIR [Suspect]
     Dates: start: 20060301, end: 20060921
  3. NORVIR [Suspect]
     Indication: HIV INFECTION
     Dates: start: 20060301, end: 20060921

REACTIONS (3)
  - HODGKIN'S DISEASE REFRACTORY [None]
  - SKIN DISORDER [None]
  - WEIGHT DECREASED [None]
